FAERS Safety Report 9466152 (Version 2)
Quarter: 2014Q1

REPORT INFORMATION
  Report Type: Spontaneous
  Country: US (occurrence: US)
  Receive Date: 20130820
  Receipt Date: 20140124
  Transmission Date: 20141002
  Serious: Yes (Death, Hospitalization)
  Sender: FDA-Public Use
  Company Number: US-B.I. PHARMACEUTICALS,INC./RIDGEFIELD-2013-BI-25626BP

PATIENT
  Age: 73 Year
  Sex: Male
  Weight: 85.73 kg

DRUGS (13)
  1. PRADAXA [Suspect]
     Indication: ANTICOAGULANT THERAPY
     Dosage: 300 MG
     Dates: start: 20110216, end: 20110709
  2. PRADAXA [Suspect]
     Indication: ATRIAL FIBRILLATION
  3. TRAZODONE HCL [Concomitant]
  4. ELAVIL [Concomitant]
  5. POTASSIUM CHLORIDE [Concomitant]
  6. FISH OIL [Concomitant]
  7. FOLIC ACID [Concomitant]
  8. MULTIVITAMINS [Concomitant]
  9. IRINOTECAN HCL [Concomitant]
  10. CALCIUM CARBONATE [Concomitant]
  11. VITAMIN D [Concomitant]
  12. SOTALOL HCL [Concomitant]
  13. SPIRONOLACTONE [Concomitant]

REACTIONS (1)
  - Cerebral haemorrhage [Fatal]
